FAERS Safety Report 10370929 (Version 1)
Quarter: 2014Q1

REPORT INFORMATION
  Report Type: Spontaneous
  Country: US (occurrence: None)
  Receive Date: 20140306
  Receipt Date: 20140306
  Transmission Date: 20141002
  Serious: Yes (Other)
  Sender: FDA-Public Use
  Company Number: 163-21880-13010121

PATIENT
  Age: 75 Year
  Sex: Male

DRUGS (12)
  1. REVLIMID (LENALIDOMIDE) (25 MILLIGRAM, CAPSULES) [Suspect]
     Indication: PLASMA CELL MYELOMA
     Dosage: 25 MG, 21 IN 21 D, PO
     Route: 048
     Dates: start: 20100429, end: 201010
  2. DECADRON (DEXAMETHASONE) [Concomitant]
  3. SIMVASTATIN (SIMVASTATIN) (TABLETS) [Concomitant]
  4. FLOMAX (TAMSULOSIN) [Concomitant]
  5. ASPIRIN (ACETYLSALICYLIC ACID) (TABLETS) [Concomitant]
  6. CYMBALTA [Concomitant]
  7. FENTANYL (FENTANYL) (POULTICE OR PATCH) [Concomitant]
  8. MECLIZINE HCL (MECLOZINE HYDROCHLORIDE) (TABLETS) [Concomitant]
  9. MELOXICAM (MELOXICAM) (TABLETS) [Concomitant]
  10. OMEPRAZOLE (OMEPRAZOLE) [Concomitant]
  11. DEXILANT (DEXLANSOPRAZOLE) (CAPSULES) [Concomitant]
  12. ONDANSETRON (ONDANSETRON) (TABLETS) [Concomitant]

REACTIONS (4)
  - Pancytopenia [None]
  - Nausea [None]
  - Vomiting [None]
  - Fatigue [None]
